FAERS Safety Report 7604299-X (Version None)
Quarter: 2011Q3

REPORT INFORMATION
  Report Type: 
  Country: None (occurrence: None)
  Receive Date: 20110712
  Receipt Date: 20110629
  Transmission Date: 20111222
  Serious: Yes (Other)
  Sender: FDA-Public Use
  Company Number: PHHY2011BR24456

PATIENT
  Sex: Male

DRUGS (10)
  1. PANTOPRAZOLE [Concomitant]
     Indication: ABDOMINAL PAIN UPPER
  2. HYGROTON [Concomitant]
     Indication: HYPERTENSION
     Dosage: 1 DF, QD
     Route: 048
  3. ASPIRIN [Concomitant]
     Dosage: 1 DF, QD
     Route: 048
  4. PANTOPRAZOLE [Concomitant]
     Dosage: 1 DF, QD
     Route: 048
  5. TRILEPTAL [Suspect]
     Indication: TRIGEMINAL NEURALGIA
     Dosage: 3 DF, QD
     Route: 048
  6. TRILEPTAL [Suspect]
     Dosage: 4 DF, QD
     Route: 048
  7. PHENYTOIN [Concomitant]
     Indication: CONVULSION
     Dosage: 150 MG, BID
     Route: 048
  8. CLONAZEPAM [Concomitant]
     Dosage: 8 DRP, AT NIGHT
     Route: 048
  9. NEOFIDIPINA [Concomitant]
     Indication: HYPERTENSION
     Dosage: 3 DF, / DAY
  10. ATENOLOL [Concomitant]
     Indication: HYPERTENSION
     Dosage: ? TABLET A DAY
     Route: 048

REACTIONS (3)
  - CEREBRAL ISCHAEMIA [None]
  - URINARY TRACT INFECTION [None]
  - CONVULSION [None]
